FAERS Safety Report 4352148-8 (Version None)
Quarter: 2004Q2

REPORT INFORMATION
  Report Type: 
  Country: None (occurrence: None)
  Receive Date: 20040430
  Receipt Date: 20040430
  Transmission Date: 20050107
  Serious: No
  Sender: FDA-Public Use
  Company Number: None

PATIENT
  Age: 29 Year
  Sex: Female

DRUGS (4)
  1. SOTRET [Suspect]
     Indication: ACNE CYSTIC
     Dosage: 60 MG DAY
  2. SOTRET [Suspect]
  3. YASMIN [Concomitant]
  4. SINGULAIR [Concomitant]

REACTIONS (3)
  - CRYING [None]
  - MOOD ALTERED [None]
  - PHARMACEUTICAL PRODUCT COMPLAINT [None]
